FAERS Safety Report 7474316-9 (Version None)
Quarter: 2011Q2

REPORT INFORMATION
  Report Type: 
  Country: None (occurrence: None)
  Receive Date: 20110511
  Receipt Date: 20110503
  Transmission Date: 20111010
  Serious: Yes (Other)
  Sender: FDA-Public Use
  Company Number: US-AMGEN-USASP2011014696

PATIENT
  Age: 57 Year
  Sex: Female

DRUGS (2)
  1. PROLIA [Suspect]
     Indication: OSTEOPOROSIS POSTMENOPAUSAL
     Dates: start: 20101227
  2. DEXLANSOPRAZOLE [Concomitant]

REACTIONS (5)
  - DYSPHAGIA [None]
  - GASTROINTESTINAL INFLAMMATION [None]
  - OESOPHAGEAL ULCER [None]
  - NAIL DISORDER [None]
  - PARONYCHIA [None]
